FAERS Safety Report 5139223-5 (Version None)
Quarter: 2006Q4

REPORT INFORMATION
  Report Type: 
  Country: None (occurrence: None)
  Receive Date: 20061030
  Receipt Date: 20060717
  Transmission Date: 20070319
  Serious: Yes (Other)
  Sender: FDA-Public Use
  Company Number: US-GLAXOSMITHKLINE-A0612502A

PATIENT
  Sex: Male

DRUGS (6)
  1. ADVAIR HFA [Suspect]
     Indication: ASTHMA
     Dosage: 1PUFF TWICE PER DAY
     Route: 055
     Dates: start: 19960101, end: 20030101
  2. COMBIVIR [Concomitant]
  3. ZERIT [Concomitant]
  4. EPIVIR [Concomitant]
  5. NEURONTIN [Concomitant]
  6. KLONOPIN [Concomitant]

REACTIONS (1)
  - ASTHMA [None]
